FAERS Safety Report 24649820 (Version 1)
Quarter: 2024Q4

REPORT INFORMATION
  Report Type: Report from Study
  Country: MX (occurrence: MX)
  Receive Date: 20241121
  Receipt Date: 20241121
  Transmission Date: 20250115
  Serious: Yes (Other)
  Sender: MERCK KGAA
  Company Number: MX-Merck Healthcare KGaA-2024061114

PATIENT
  Sex: Female

DRUGS (2)
  1. LEVOTHYROXINE SODIUM [Suspect]
     Active Substance: LEVOTHYROXINE SODIUM
     Indication: Product used for unknown indication
  2. CONJUGATED ESTROGENS [Concomitant]
     Active Substance: ESTROGENS, CONJUGATED
     Indication: Product used for unknown indication
     Dosage: 1/2 TABLET 0.625 MCG EVERY THIRD DAY, ULTRA LABORATORY

REACTIONS (3)
  - Deafness [Unknown]
  - Astigmatism [Unknown]
  - Alopecia [Not Recovered/Not Resolved]
